FAERS Safety Report 10042756 (Version 2)
Quarter: 2014Q2

REPORT INFORMATION
  Report Type: Spontaneous
  Country: US (occurrence: US)
  Receive Date: 20140327
  Receipt Date: 20140520
  Transmission Date: 20141212
  Serious: Yes (Death, Hospitalization)
  Sender: FDA-Public Use
  Company Number: US-B.I. PHARMACEUTICALS,INC./RIDGEFIELD-2014-BI-13152BP

PATIENT
  Age: 83 Year
  Sex: Female

DRUGS (14)
  1. COMBIVENT [Suspect]
     Indication: CHRONIC OBSTRUCTIVE PULMONARY DISEASE
     Dosage: STRENGTH: 20 MCG / 100 MCG; DAILY DOSE: 80 MCG / 400 MCG
     Route: 055
     Dates: start: 20140116
  2. SPIRIVA [Suspect]
     Indication: CHRONIC OBSTRUCTIVE PULMONARY DISEASE
     Dosage: 18 MCG
     Route: 055
     Dates: start: 20130304
  3. SPIRIVA [Suspect]
     Dosage: 18 MCG
     Route: 055
     Dates: start: 20131211
  4. PRADAXA [Suspect]
     Indication: PRODUCT USED FOR UNKNOWN INDICATION
     Dosage: 300 MG
     Route: 048
     Dates: start: 20131211
  5. DIOVAN [Concomitant]
     Dosage: 80 MG
     Route: 065
     Dates: start: 20131211
  6. CYMBALTA [Concomitant]
     Dosage: 30 MG
     Route: 065
     Dates: start: 20131211
  7. ATENOLOL [Concomitant]
     Dosage: 25 MG
     Route: 065
     Dates: start: 20131211
  8. XANAX [Concomitant]
     Dosage: 1.5 MG
     Route: 065
     Dates: start: 20131211
  9. VITAMIN D [Concomitant]
     Route: 065
     Dates: start: 20131211
  10. TYLENOL [Concomitant]
     Route: 065
     Dates: start: 20131211
  11. PRILOSEC [Concomitant]
     Dosage: 40 MG
     Route: 065
     Dates: start: 20131211
  12. PRESERVISION [Concomitant]
     Route: 065
     Dates: start: 20131211
  13. PRAVASTATIN SODIUM [Concomitant]
     Dosage: 80 MG
     Route: 065
     Dates: start: 20131211
  14. COMBIVENT [Concomitant]
     Dosage: STRENGTH: 18 MCG/103 MCG / ACT
     Route: 065

REACTIONS (3)
  - Pneumonia [Fatal]
  - Chronic respiratory failure [Fatal]
  - Pelvic fracture [Unknown]
